FAERS Safety Report 16355427 (Version 1)
Quarter: 2019Q2

REPORT INFORMATION
  Report Type: Spontaneous
  Country: GB (occurrence: GB)
  Receive Date: 20190525
  Receipt Date: 20190525
  Transmission Date: 20190711
  Serious: Yes (Hospitalization)
  Sender: FDA-Public Use
  Company Number: GB-TEVA-2019-GB-1053725

PATIENT
  Age: 73 Year
  Sex: Male
  Weight: 72 kg

DRUGS (13)
  1. NUTRITIONAL SUPPLEMENT [Concomitant]
     Active Substance: DIETARY SUPPLEMENT
     Dates: start: 20181017
  2. CHLORHEXIDINE DIHYDROCHLORIDE [Suspect]
     Active Substance: CHLORHEXIDINE HYDROCHLORIDE
     Dates: start: 20181019
  3. RILUZOLE. [Concomitant]
     Active Substance: RILUZOLE
     Dosage: CAN BE CRUSHED AND MIXED
     Dates: start: 20180302
  4. HYOSCINE HYDROBROMIDE [Concomitant]
     Active Substance: SCOPOLAMINE HYDROBROMIDE
     Dosage: APPLY
     Dates: start: 20180430
  5. ATORVASTATIN [Concomitant]
     Active Substance: ATORVASTATIN
     Dates: start: 20180302
  6. NUTRITIONAL SUPPLEMENT [Concomitant]
     Active Substance: DIETARY SUPPLEMENT
     Dosage: BETWEEN MEALS
     Dates: start: 20180815
  7. AMITRIPTYLINE HYDROCHLORIDE. [Concomitant]
     Active Substance: AMITRIPTYLINE HYDROCHLORIDE
     Dosage: TAKE 10-20MG (5-10ML)DAILY
     Dates: start: 20181017
  8. NYSTATIN. [Suspect]
     Active Substance: NYSTATIN
     Dates: start: 20181019
  9. AMLODIPINE [Concomitant]
     Active Substance: AMLODIPINE BESYLATE
     Dates: start: 20180302
  10. CARBOCISTEINE [Concomitant]
     Active Substance: CARBOCYSTEINE
     Dates: start: 20180302
  11. ATROPINE SULFATE. [Concomitant]
     Active Substance: ATROPINE SULFATE
     Dosage: 1-2 DROPS FOUR TIMES DAILY
     Dates: start: 20180430
  12. AMOXICILLIN. [Concomitant]
     Active Substance: AMOXICILLIN
     Dates: start: 20181016, end: 20181017
  13. FORTISIP [Concomitant]
     Active Substance: CARBOHYDRATES\FATTY ACIDS\MINERALS\PROTEIN\VITAMINS
     Dosage: BETWEEN MEALS
     Dates: start: 20180620, end: 20180815

REACTIONS (2)
  - Swelling face [Recovered/Resolved]
  - Hypersensitivity [Unknown]

NARRATIVE: CASE EVENT DATE: 20181019
